FAERS Safety Report 11980936 (Version 1)
Quarter: 2016Q1

REPORT INFORMATION
  Report Type: Spontaneous
  Country: JP (occurrence: JP)
  Receive Date: 20160129
  Receipt Date: 20160129
  Transmission Date: 20160526
  Serious: Yes (Other)
  Sender: FDA-Public Use
  Company Number: JP-ROXANE LABORATORIES, INC.-2016-RO-00134RO

PATIENT
  Age: 64 Year
  Sex: Male
  Weight: 68 kg

DRUGS (9)
  1. NITRAZEPAM [Concomitant]
     Active Substance: NITRAZEPAM
     Dosage: 5 MG
     Route: 065
  2. CISPLATIN. [Suspect]
     Active Substance: CISPLATIN
     Indication: NEOPLASM RECURRENCE
     Route: 065
  3. GRANISETRON [Suspect]
     Active Substance: GRANISETRON
     Indication: NEOPLASM RECURRENCE
     Route: 065
  4. SENNOSIDE [Concomitant]
     Active Substance: SENNOSIDES
     Dosage: 24 MG
     Route: 065
  5. APREPITANT. [Suspect]
     Active Substance: APREPITANT
     Indication: NEOPLASM RECURRENCE
     Route: 065
  6. GEMCITABINE [Suspect]
     Active Substance: GEMCITABINE\GEMCITABINE HYDROCHLORIDE
     Indication: NEOPLASM RECURRENCE
     Route: 065
  7. PITAVASTATIN CALCIUM [Concomitant]
     Active Substance: PITAVASTATIN CALCIUM
     Dosage: 1 MG
     Route: 065
  8. DEXAMETHASONE TABLETS USP, 1.5 MG [Suspect]
     Active Substance: DEXAMETHASONE
     Indication: NEOPLASM RECURRENCE
     Route: 065
  9. WARFARIN [Suspect]
     Active Substance: WARFARIN
     Indication: DEEP VEIN THROMBOSIS
     Dosage: 3 MG
     Route: 065

REACTIONS (1)
  - Coagulation time prolonged [Unknown]
